FAERS Safety Report 24064034 (Version 1)
Quarter: 2024Q3

REPORT INFORMATION
  Report Type: Spontaneous
  Country: US (occurrence: US)
  Receive Date: 20240709
  Receipt Date: 20240709
  Transmission Date: 20241016
  Serious: Yes (Death, Life-Threatening, Hospitalization, Other)
  Sender: RANBAXY
  Company Number: US-SUN PHARMACEUTICAL INDUSTRIES LTD-2024R1-455422

PATIENT
  Age: 79 Year
  Sex: Female

DRUGS (3)
  1. AZITHROMYCIN [Suspect]
     Active Substance: AZITHROMYCIN
     Indication: Lyme disease
     Dosage: UNK
     Route: 065
  2. DOXYCYCLINE [Suspect]
     Active Substance: DOXYCYCLINE\DOXYCYCLINE HYCLATE
     Indication: Lyme disease
     Dosage: UNK
     Route: 065
  3. ATOVAQUONE [Suspect]
     Active Substance: ATOVAQUONE
     Indication: Lyme disease
     Dosage: UNK
     Route: 065

REACTIONS (9)
  - Sudden cardiac death [Fatal]
  - Blood lactic acid increased [Unknown]
  - Myocarditis [Unknown]
  - Dyspnoea [Unknown]
  - Chest discomfort [Unknown]
  - Pulmonary oedema [Unknown]
  - Stress cardiomyopathy [Unknown]
  - Pulmonary hypertension [Unknown]
  - Hepatic enzyme increased [Unknown]
